FAERS Safety Report 8065390-X (Version None)
Quarter: 2012Q1

REPORT INFORMATION
  Report Type: 
  Country: None (occurrence: None)
  Receive Date: 20120124
  Receipt Date: 20120119
  Transmission Date: 20120608
  Serious: Yes (Hospitalization)
  Sender: FDA-Public Use
  Company Number: FR-SHIRE-SPV1-2012-00061

PATIENT
  Age: 63 Year
  Sex: Female

DRUGS (3)
  1. ANAGRELIDE HYDROCHLORIDE [Suspect]
     Dosage: 4 DF, 1X/DAY:QD
     Route: 048
     Dates: start: 20061001, end: 20080701
  2. ANAGRELIDE HYDROCHLORIDE [Suspect]
     Dosage: 3 DF, 1X/DAY:QD
     Route: 048
     Dates: start: 20110901
  3. ANAGRELIDE HYDROCHLORIDE [Suspect]
     Indication: ESSENTIAL THROMBOCYTHAEMIA
     Dosage: 5 DF, 1X/DAY:QD
     Route: 048
     Dates: start: 20080701, end: 20110901

REACTIONS (2)
  - VERTIGO [None]
  - MALAISE [None]
